FAERS Safety Report 7671530-4 (Version None)
Quarter: 2011Q3

REPORT INFORMATION
  Report Type: 
  Country: None (occurrence: None)
  Receive Date: 20110809
  Receipt Date: 20110809
  Transmission Date: 20111222
  Serious: No
  Sender: FDA-Public Use
  Company Number: None

PATIENT
  Sex: Female
  Weight: 63.502 kg

DRUGS (2)
  1. PRISTIQ [Concomitant]
     Dosage: 25
  2. PRISTIQ [Suspect]
     Indication: DEPRESSION
     Dosage: 50 MG
     Dates: start: 20110622, end: 20110802

REACTIONS (2)
  - WRONG TECHNIQUE IN DRUG USAGE PROCESS [None]
  - ANXIETY [None]
